FAERS Safety Report 14674066 (Version 1)
Quarter: 2018Q1

REPORT INFORMATION
  Report Type: Spontaneous
  Country: FR (occurrence: FR)
  Receive Date: 20180323
  Receipt Date: 20180323
  Transmission Date: 20180509
  Serious: Yes (Other)
  Sender: FDA-Public Use
  Company Number: FR-PFIZER INC-2018119200

PATIENT
  Age: 68 Year
  Sex: Female

DRUGS (1)
  1. PANTOPRAZOLE [Suspect]
     Active Substance: PANTOPRAZOLE
     Dosage: UNK
     Route: 065

REACTIONS (12)
  - Depressed mood [Recovering/Resolving]
  - Facial bones fracture [Recovering/Resolving]
  - Sleep disorder [Recovering/Resolving]
  - Syncope [Recovering/Resolving]
  - Urticaria [Recovering/Resolving]
  - Dry mouth [Recovering/Resolving]
  - Fall [Recovering/Resolving]
  - Disorientation [Recovering/Resolving]
  - Dizziness [Recovering/Resolving]
  - Dyspnoea [Recovering/Resolving]
  - Vision blurred [Recovering/Resolving]
  - Vomiting [Recovering/Resolving]

NARRATIVE: CASE EVENT DATE: 201801
